FAERS Safety Report 13724844 (Version 1)
Quarter: 2017Q3

REPORT INFORMATION
  Report Type: Spontaneous
  Country: US (occurrence: US)
  Receive Date: 20170706
  Receipt Date: 20170706
  Transmission Date: 20171127
  Serious: No
  Sender: FDA-Public Use
  Company Number: US-TEVA-784176ACC

PATIENT
  Age: 32 Year
  Sex: Female

DRUGS (1)
  1. NUVIGIL [Suspect]
     Active Substance: ARMODAFINIL
     Indication: NARCOLEPSY
     Dosage: UNKNOWN DOSE AND FREQUENCY
     Route: 065

REACTIONS (3)
  - Mood swings [Unknown]
  - Somnolence [Unknown]
  - Nervousness [Unknown]
